FAERS Safety Report 7289249-0 (Version None)
Quarter: 2011Q1

REPORT INFORMATION
  Report Type: 
  Country: None (occurrence: None)
  Receive Date: 20110201
  Receipt Date: 20110119
  Transmission Date: 20110831
  Serious: Yes (Hospitalization)
  Sender: FDA-Public Use
  Company Number: 2010P1002684

PATIENT
  Age: 85 Year
  Sex: Female
  Weight: 77.1115 kg

DRUGS (10)
  1. VITAMIN D [Concomitant]
  2. VITAMIN E [Concomitant]
  3. ASCORBIC ACID [Concomitant]
  4. FENTANYL-25 [Suspect]
     Indication: NECK PAIN
     Dosage: 25 MCG/HR;Q27H;TDER
     Route: 062
     Dates: start: 20080101, end: 20101125
  5. VITAMIN A [Concomitant]
  6. CALCIUM [Concomitant]
  7. MAGNESIUM [Concomitant]
  8. DILTIAZEM HCL CD [Concomitant]
  9. VITAMIN B-12 [Concomitant]
  10. FISH OIL [Concomitant]

REACTIONS (5)
  - MALAISE [None]
  - PRODUCT QUALITY ISSUE [None]
  - DYSPNOEA [None]
  - DIZZINESS [None]
  - FEELING JITTERY [None]
